FAERS Safety Report 24960886 (Version 1)
Quarter: 2025Q1

REPORT INFORMATION
  Report Type: Spontaneous
  Country: MX (occurrence: MX)
  Receive Date: 20250212
  Receipt Date: 20250212
  Transmission Date: 20250408
  Serious: Yes (Other)
  Sender: UCB
  Company Number: MX-UCBSA-2025007720

PATIENT
  Sex: Female

DRUGS (3)
  1. LEVETIRACETAM [Suspect]
     Active Substance: LEVETIRACETAM
     Indication: Seizure
  2. LACOSAMIDE [Suspect]
     Active Substance: LACOSAMIDE
     Indication: Seizure
  3. VALPROATE MAGNESIUM [Concomitant]
     Active Substance: VALPROATE MAGNESIUM
     Indication: Seizure

REACTIONS (8)
  - Seizure [Recovering/Resolving]
  - Disability [Unknown]
  - Loss of consciousness [Unknown]
  - Fatigue [Unknown]
  - Pain in extremity [Unknown]
  - Pain in jaw [Unknown]
  - Injury [Unknown]
  - Fall [Unknown]
